FAERS Safety Report 9928564 (Version 1)
Quarter: 2014Q1

REPORT INFORMATION
  Report Type: Spontaneous
  Country: US (occurrence: US)
  Receive Date: 20140227
  Receipt Date: 20140227
  Transmission Date: 20141002
  Serious: Yes (Hospitalization)
  Sender: FDA-Public Use
  Company Number: US-SA-2014SA023869

PATIENT
  Age: 28 Year
  Sex: Female

DRUGS (2)
  1. FUROSEMIDE [Suspect]
     Indication: PULMONARY OEDEMA
     Route: 065
  2. PROPRANOLOL HYDROCHLORIDE [Suspect]
     Indication: TACHYCARDIA
     Route: 065

REACTIONS (3)
  - Dyspnoea [Unknown]
  - Inappropriate schedule of drug administration [Unknown]
  - Exposure during pregnancy [Unknown]
